FAERS Safety Report 4663863-0 (Version None)
Quarter: 2005Q2

REPORT INFORMATION
  Report Type: 
  Country: None (occurrence: None)
  Receive Date: 20050516
  Receipt Date: 20050504
  Transmission Date: 20051028
  Serious: Yes (Other)
  Sender: FDA-Public Use
  Company Number: 2005070647

PATIENT
  Age: 55 Year
  Sex: Female
  Weight: 58.514 kg

DRUGS (2)
  1. ESTRING [Suspect]
     Indication: VULVOVAGINAL DRYNESS
     Dosage: (EVERY 3 MONTHS), VAGINAL
     Route: 067
     Dates: start: 20050201
  2. ALENDRONATE SODIUM [Concomitant]

REACTIONS (4)
  - FEELING ABNORMAL [None]
  - HYPERTROPHY BREAST [None]
  - OSTEOPOROSIS [None]
  - WEIGHT INCREASED [None]
